FAERS Safety Report 16237862 (Version 1)
Quarter: 2019Q2

REPORT INFORMATION
  Report Type: Spontaneous
  Country: US (occurrence: US)
  Receive Date: 20190425
  Receipt Date: 20190425
  Transmission Date: 20190711
  Serious: Yes (Other)
  Sender: FDA-Public Use
  Company Number: US-ASTRAZENECA-2019SE62384

PATIENT
  Sex: Female

DRUGS (2)
  1. OLAPARIB. [Suspect]
     Active Substance: OLAPARIB
     Indication: METASTASES TO LIVER
     Dosage: UNK
     Route: 048
     Dates: start: 201903, end: 201904
  2. OLAPARIB. [Suspect]
     Active Substance: OLAPARIB
     Indication: GENITAL NEOPLASM MALIGNANT FEMALE
     Dosage: UNK
     Route: 048
     Dates: start: 201903, end: 201904

REACTIONS (2)
  - Malignant neoplasm progression [Unknown]
  - Blood bilirubin increased [Unknown]
